FAERS Safety Report 4494902-8 (Version None)
Quarter: 2004Q4

REPORT INFORMATION
  Report Type: 
  Country: None (occurrence: None)
  Receive Date: 20041103
  Receipt Date: 20041022
  Transmission Date: 20050328
  Serious: Yes (Death)
  Sender: FDA-Public Use
  Company Number: BDI-006588

PATIENT
  Sex: Male

DRUGS (11)
  1. ISOVUE-370 [Suspect]
     Indication: ANGIOGRAM
     Dosage: 180 ML ONCE IV
     Route: 042
     Dates: start: 20040911, end: 20040911
  2. ISOVUE-370 [Suspect]
     Indication: GANGRENE
     Dosage: 180 ML ONCE IV
     Route: 042
     Dates: start: 20040911, end: 20040911
  3. CEFOTAN [Concomitant]
  4. ZOCOR [Concomitant]
  5. ASPIRIN [Concomitant]
  6. NORVASC [Concomitant]
  7. AVANDIA [Concomitant]
  8. ATIVAN [Concomitant]
  9. AMARYL [Concomitant]
  10. HYDRODIURIL [Concomitant]
  11. LANTUS [Concomitant]

REACTIONS (3)
  - CARDIO-RESPIRATORY ARREST [None]
  - CONVULSION [None]
  - LOSS OF CONSCIOUSNESS [None]
